FAERS Safety Report 5201168-X (Version None)
Quarter: 2007Q1

REPORT INFORMATION
  Report Type: 
  Country: None (occurrence: None)
  Receive Date: 20070104
  Receipt Date: 20061219
  Transmission Date: 20070707
  Serious: Yes (Hospitalization)
  Sender: FDA-Public Use
  Company Number: 2006BI018750

PATIENT
  Age: 33 Year
  Sex: Female

DRUGS (1)
  1. AVONEX [Suspect]
     Indication: MULTIPLE SCLEROSIS
     Dosage: 30 UG QW IM
     Route: 030

REACTIONS (6)
  - BACK INJURY [None]
  - BLINDNESS UNILATERAL [None]
  - FALL [None]
  - HEAD INJURY [None]
  - TINNITUS [None]
  - VISUAL DISTURBANCE [None]
